FAERS Safety Report 4713708-5 (Version None)
Quarter: 2005Q3

REPORT INFORMATION
  Report Type: 
  Country: None (occurrence: None)
  Receive Date: 20050712
  Receipt Date: 20050627
  Transmission Date: 20060218
  Serious: Yes (Hospitalization, Disabling, Other)
  Sender: FDA-Public Use
  Company Number: USA030536027

PATIENT
  Age: 76 Year
  Sex: Female
  Weight: 47 kg

DRUGS (7)
  1. FORTEO [Suspect]
     Indication: OSTEOPOROSIS
     Dosage: 20 UG/1 DAY
     Dates: start: 20030301, end: 20050301
  2. CALCIUM GLUCONATE [Concomitant]
  3. MIACALCIN [Concomitant]
  4. VITAMIN CAP [Concomitant]
  5. PREDNISONE [Concomitant]
  6. TOPROL XL (METOPROLOL SUCCINATE0 [Concomitant]
  7. METHYLPREDNISOLONE [Concomitant]

REACTIONS (18)
  - ABDOMINAL SYMPTOM [None]
  - ANIMAL SCRATCH [None]
  - CELLULITIS [None]
  - COMPRESSION FRACTURE [None]
  - DEAFNESS [None]
  - DEVICE FAILURE [None]
  - DRUG LEVEL INCREASED [None]
  - HEADACHE [None]
  - HEART RATE INCREASED [None]
  - HYPERTENSION [None]
  - IMPAIRED HEALING [None]
  - INJECTION SITE REACTION [None]
  - OVERDOSE [None]
  - PALPITATIONS [None]
  - PNEUMONIA [None]
  - SEPSIS [None]
  - SKIN LACERATION [None]
  - WOUND INFECTION STAPHYLOCOCCAL [None]
